FAERS Safety Report 8089537-4 (Version None)
Quarter: 2012Q1

REPORT INFORMATION
  Report Type: 
  Country: None (occurrence: None)
  Receive Date: 20120128
  Receipt Date: 20110616
  Transmission Date: 20120608
  Serious: No
  Sender: FDA-Public Use
  Company Number: US-ABBOTT-11P-163-0733169-00

PATIENT
  Age: 43 Year
  Sex: Male

DRUGS (4)
  1. SULFASALAZINE [Concomitant]
     Indication: INFLAMMATION
     Route: 048
  2. INDOMETHACIN [Concomitant]
     Indication: INFLAMMATION
     Route: 048
  3. TRAMADOL HCL [Concomitant]
     Indication: PAIN
     Route: 048
  4. HUMIRA [Suspect]
     Indication: ANKYLOSING SPONDYLITIS
     Dates: start: 20110501

REACTIONS (3)
  - MUSCULOSKELETAL STIFFNESS [None]
  - DRUG INEFFECTIVE [None]
  - BACK PAIN [None]
